APPROVED DRUG PRODUCT: GADOTERIDOL
Active Ingredient: GADOTERIDOL
Strength: 279.3MG/ML
Dosage Form/Route: INJECTABLE;INJECTION
Application: A218749 | Product #001 | TE Code: AP
Applicant: HAINAN POLY PHARM CO LTD
Approved: Feb 11, 2025 | RLD: No | RS: No | Type: RX